FAERS Safety Report 9437785 (Version 1)
Quarter: 2013Q3

REPORT INFORMATION
  Report Type: Spontaneous
  Country: US (occurrence: US)
  Receive Date: 20130802
  Receipt Date: 20130802
  Transmission Date: 20140515
  Serious: No
  Sender: FDA-Public Use
  Company Number: US-BRISTOL-MYERS SQUIBB COMPANY-17438920

PATIENT
  Sex: Female

DRUGS (3)
  1. COUMADIN TABS [Suspect]
     Indication: ATRIAL FIBRILLATION
     Route: 048
  2. XARELTO [Concomitant]
     Indication: ATRIAL FIBRILLATION
     Dosage: TABS
     Route: 048
  3. XARELTO [Concomitant]
     Indication: CEREBROVASCULAR ACCIDENT PROPHYLAXIS
     Dosage: TABS
     Route: 048

REACTIONS (5)
  - Abasia [Not Recovered/Not Resolved]
  - Dyspnoea exertional [Not Recovered/Not Resolved]
  - International normalised ratio fluctuation [Not Recovered/Not Resolved]
  - Abdominal pain upper [Not Recovered/Not Resolved]
  - Skin discolouration [Not Recovered/Not Resolved]
